FAERS Safety Report 22615919 (Version 6)
Quarter: 2024Q2

REPORT INFORMATION
  Report Type: Report from Study
  Country: JP (occurrence: None)
  Receive Date: 20230619
  Receipt Date: 20240409
  Transmission Date: 20240716
  Serious: Yes (Life-Threatening, Other)
  Sender: FDA-Public Use
  Company Number: 2023A139874

PATIENT
  Age: 63 Year
  Sex: Male
  Weight: 53 kg

DRUGS (4)
  1. IMFINZI [Suspect]
     Active Substance: DURVALUMAB
     Indication: Non-small cell lung cancer
     Route: 042
     Dates: start: 20230609, end: 20230609
  2. IMJUDO [Suspect]
     Active Substance: TREMELIMUMAB\TREMELIMUMAB-ACTL
     Indication: Non-small cell lung cancer
     Route: 042
     Dates: start: 20230609, end: 20230609
  3. CARBOPLATIN [Concomitant]
     Active Substance: CARBOPLATIN
     Dosage: NUMBER OF SEPARATE DOSAGES UNKNOWN580.0MG ONCE/SINGLE ADMINISTRATION
     Dates: start: 20230609, end: 20230609
  4. PEMETREXED [Concomitant]
     Active Substance: PEMETREXED
     Dosage: NUMBER OF SEPARATE DOSAGES UNKNOWN700.0MG ONCE/SINGLE ADMINISTRATION
     Dates: start: 20230609, end: 20230629

REACTIONS (1)
  - Gastrointestinal perforation [Recovering/Resolving]

NARRATIVE: CASE EVENT DATE: 20230614
